FAERS Safety Report 4484244-9 (Version None)
Quarter: 2004Q4

REPORT INFORMATION
  Report Type: 
  Country: None (occurrence: None)
  Receive Date: 20041025
  Receipt Date: 20040930
  Transmission Date: 20050328
  Serious: Yes (Hospitalization)
  Sender: FDA-Public Use
  Company Number: JP-GLAXOSMITHKLINE-B0347165A

PATIENT
  Age: 37 Year
  Sex: Female

DRUGS (8)
  1. IMIGRAN [Suspect]
     Indication: MIGRAINE
     Dosage: 3MG SINGLE DOSE
     Route: 058
     Dates: start: 20040929, end: 20040929
  2. PONTAL [Concomitant]
     Indication: HEADACHE
     Dosage: .67G PER DAY
     Route: 048
  3. CAFFEINE [Concomitant]
     Indication: HEADACHE
     Dosage: .067G PER DAY
     Route: 048
  4. ROBAXIN [Concomitant]
     Indication: HEADACHE
     Dosage: .5G PER DAY
     Route: 048
  5. HORIZON [Concomitant]
     Indication: HEADACHE
     Dosage: .2G PER DAY
     Route: 048
  6. ACETAMINOPHEN [Concomitant]
     Indication: HEADACHE
     Dosage: .1G PER DAY
     Route: 048
  7. ALUMIGEL [Concomitant]
     Indication: HEADACHE
     Dosage: .67G PER DAY
     Route: 048
  8. INDOMETHACIN [Concomitant]
     Dosage: 25MG PER DAY
     Route: 048
     Dates: start: 20040929, end: 20040930

REACTIONS (6)
  - HEADACHE [None]
  - MENINGITIS [None]
  - MENINGITIS ASEPTIC [None]
  - NAUSEA [None]
  - NUCHAL RIGIDITY [None]
  - PYREXIA [None]
